FAERS Safety Report 19270880 (Version 2)
Quarter: 2021Q2

REPORT INFORMATION
  Report Type: Spontaneous
  Country: NL (occurrence: NL)
  Receive Date: 20210518
  Receipt Date: 20210601
  Transmission Date: 20210717
  Serious: Yes (Other)
  Sender: FDA-Public Use
  Company Number: NL-FRESENIUS KABI-FK202104970

PATIENT
  Age: 50 Year

DRUGS (1)
  1. PROPOFOL 2% FRESENIUS [Suspect]
     Active Substance: PROPOFOL
     Indication: ANAESTHESIA
     Dosage: UNK
     Route: 065
     Dates: start: 20210419, end: 20210419

REACTIONS (6)
  - Air embolism [Recovered/Resolved]
  - Tachypnoea [Recovered/Resolved]
  - Drug ineffective [Recovered/Resolved]
  - Syringe issue [Recovered/Resolved]
  - Carbon dioxide abnormal [Recovered/Resolved]
  - Oxygen saturation decreased [Recovered/Resolved]

NARRATIVE: CASE EVENT DATE: 20210419
